FAERS Safety Report 9802176 (Version 3)
Quarter: 2014Q2

REPORT INFORMATION
  Report Type: Report from Study
  Country: FR (occurrence: FR)
  Receive Date: 20140107
  Receipt Date: 20140630
  Transmission Date: 20141212
  Serious: Yes (Hospitalization)
  Sender: FDA-Public Use
  Company Number: FR-BRISTOL-MYERS SQUIBB COMPANY-16828832

PATIENT
  Age: 58 Year
  Sex: Male

DRUGS (1)
  1. IPILIMUMAB [Suspect]
     Indication: MALIGNANT MELANOMA
     Route: 042
     Dates: start: 20100916, end: 20120510

REACTIONS (3)
  - Colitis [Recovered/Resolved with Sequelae]
  - Presyncope [Recovered/Resolved]
  - Atrial fibrillation [Recovered/Resolved]
